FAERS Safety Report 5473203-5 (Version None)
Quarter: 2007Q4

REPORT INFORMATION
  Report Type: 
  Country: None (occurrence: None)
  Receive Date: 20071001
  Receipt Date: 20070925
  Transmission Date: 20080405
  Serious: Yes (Life-Threatening)
  Sender: FDA-Public Use
  Company Number: JP-ASTRAZENECA-2007AP05883

PATIENT
  Age: 63 Year
  Sex: Female

DRUGS (4)
  1. ARIMIDEX [Suspect]
     Indication: BREAST CANCER
     Route: 048
     Dates: start: 20070401, end: 20070901
  2. ENDOXAN-P [Concomitant]
     Route: 048
     Dates: start: 20070301, end: 20070901
  3. PREDONINE [Concomitant]
     Route: 048
  4. RADIOTHERAPY [Concomitant]
     Indication: UTERINE CANCER

REACTIONS (1)
  - DISSEMINATED INTRAVASCULAR COAGULATION [None]
